FAERS Safety Report 15002065 (Version 1)
Quarter: 2018Q2

REPORT INFORMATION
  Report Type: Spontaneous
  Country: US (occurrence: US)
  Receive Date: 20180612
  Receipt Date: 20180612
  Transmission Date: 20180711
  Serious: No
  Sender: FDA-Public Use
  Company Number: US-SEPTODONT-201704325

PATIENT
  Age: 41 Year
  Sex: Male

DRUGS (2)
  1. SEPTOCAINE AND EPINEPHRINE [Suspect]
     Active Substance: ARTICAINE HYDROCHLORIDE\EPINEPHRINE BITARTRATE
     Indication: DENTAL LOCAL ANAESTHESIA
     Dosage: 30G 30X25 MM NEEDLE??INFILTRATION AND NERVE BLOCK TECHNIQUE
     Route: 004
     Dates: start: 20170725, end: 20170725
  2. CHLORHEXIDINE [Concomitant]
     Active Substance: CHLORHEXIDINE
     Dates: start: 20170808, end: 20170808

REACTIONS (1)
  - Hypoaesthesia [Recovered/Resolved]

NARRATIVE: CASE EVENT DATE: 20170725
